FAERS Safety Report 15089210 (Version 1)
Quarter: 2018Q2

REPORT INFORMATION
  Report Type: Spontaneous
  Country: US (occurrence: US)
  Receive Date: 20180629
  Receipt Date: 20180629
  Transmission Date: 20180711
  Serious: No
  Sender: FDA-Public Use
  Company Number: US-TRIS PHARMA, INC-2018TRISPO00490

PATIENT

DRUGS (1)
  1. DEXTROMETHORPHAN POLISTIREX [Suspect]
     Active Substance: DEXTROMETHORPHAN HYDROBROMIDE
     Indication: COUGH
     Dosage: 15 ML, UNK
     Route: 065
     Dates: start: 20180607

REACTIONS (2)
  - Incorrect drug administration duration [Unknown]
  - Insomnia [Unknown]

NARRATIVE: CASE EVENT DATE: 20180607
